FAERS Safety Report 21879352 (Version 1)
Quarter: 2023Q1

REPORT INFORMATION
  Report Type: Spontaneous
  Country: JP (occurrence: JP)
  Receive Date: 20230118
  Receipt Date: 20230118
  Transmission Date: 20230418
  Serious: Yes (Other)
  Sender: FDA-Public Use
  Company Number: JP-STRIDES ARCOLAB LIMITED-2023SP000875

PATIENT
  Age: 46 Year
  Sex: Male

DRUGS (4)
  1. COLCHICINE [Suspect]
     Active Substance: COLCHICINE
     Indication: Chronic spontaneous urticaria
     Dosage: 0.5 MILLIGRAM, BID
     Route: 065
  2. COLCHICINE [Suspect]
     Active Substance: COLCHICINE
     Dosage: UNK, DOSE WAS DECREASED
     Route: 065
  3. COLCHICINE [Suspect]
     Active Substance: COLCHICINE
     Dosage: 0.5 MILLIGRAM, BID, ORIGINAL DOSE WAS RESTORED
     Route: 065
  4. OMALIZUMAB [Concomitant]
     Active Substance: OMALIZUMAB
     Indication: Chronic spontaneous urticaria
     Dosage: UNK
     Route: 065

REACTIONS (3)
  - Rebound effect [Recovered/Resolved]
  - Urticaria [Recovered/Resolved]
  - Off label use [Unknown]
